FAERS Safety Report 6037713-4 (Version None)
Quarter: 2009Q1

REPORT INFORMATION
  Report Type: 
  Country: None (occurrence: None)
  Receive Date: 20090114
  Receipt Date: 20090107
  Transmission Date: 20090719
  Serious: Yes (Other)
  Sender: FDA-Public Use
  Company Number: US-GENENTECH-274823

PATIENT
  Age: 82 Year
  Sex: Female

DRUGS (12)
  1. AVASTIN [Suspect]
     Indication: MACULAR DEGENERATION
     Dosage: 1.25 MG, UNK
     Route: 031
  2. XALATAN [Concomitant]
     Indication: DRUG USE FOR UNKNOWN INDICATION
  3. VIGAMOX [Concomitant]
     Indication: DRUG USE FOR UNKNOWN INDICATION
  4. PULMICORT-100 [Concomitant]
     Indication: DRUG USE FOR UNKNOWN INDICATION
  5. LEVOXYL [Concomitant]
     Indication: DRUG USE FOR UNKNOWN INDICATION
  6. ICAPS [Concomitant]
     Indication: DRUG USE FOR UNKNOWN INDICATION
  7. NAMENDA [Concomitant]
     Indication: DRUG USE FOR UNKNOWN INDICATION
  8. ONE A DAY 50 PLUS MULTIVITAMIN/MULTIMINERAL S [Concomitant]
     Indication: DRUG USE FOR UNKNOWN INDICATION
  9. TYLENOL (CAPLET) [Concomitant]
     Indication: DRUG USE FOR UNKNOWN INDICATION
  10. ARICEPT [Concomitant]
     Indication: DRUG USE FOR UNKNOWN INDICATION
  11. SINGULAIR [Concomitant]
     Indication: DRUG USE FOR UNKNOWN INDICATION
  12. BETADINE [Concomitant]
     Indication: DRUG USE FOR UNKNOWN INDICATION

REACTIONS (1)
  - EYE INFLAMMATION [None]
